FAERS Safety Report 9554191 (Version 1)
Quarter: 2013Q3

REPORT INFORMATION
  Report Type: Spontaneous
  Country: US (occurrence: None)
  Receive Date: 20130802
  Receipt Date: 20130802
  Transmission Date: 20140515
  Serious: Yes (Hospitalization)
  Sender: FDA-Public Use
  Company Number: 1303USA007054

PATIENT
  Age: 73 Year
  Sex: Male

DRUGS (1)
  1. INTRON A [Suspect]
     Indication: MALIGNANT MELANOMA
     Dates: start: 20130117, end: 2013

REACTIONS (4)
  - Pneumonia [None]
  - Rash [None]
  - Fatigue [None]
  - Weight decreased [None]
